FAERS Safety Report 5070039-4 (Version None)
Quarter: 2006Q3

REPORT INFORMATION
  Report Type: 
  Country: None (occurrence: None)
  Receive Date: 20060731
  Receipt Date: 20060718
  Transmission Date: 20061208
  Serious: Yes (Other)
  Sender: FDA-Public Use
  Company Number: 2006088820

PATIENT
  Age: 42 Year
  Sex: Female
  Weight: 45.3597 kg

DRUGS (1)
  1. UNASYN [Suspect]
     Indication: DRUG USE FOR UNKNOWN INDICATION
     Dosage: 12 GRAM (1.5 GRAM), INTRAVENOUS
     Route: 042

REACTIONS (1)
  - BRONCHOSPASM [None]
